FAERS Safety Report 7323113-3 (Version None)
Quarter: 2011Q1

REPORT INFORMATION
  Report Type: 
  Country: None (occurrence: None)
  Receive Date: 20110301
  Receipt Date: 20110223
  Transmission Date: 20110831
  Serious: Yes (Life-Threatening)
  Sender: FDA-Public Use
  Company Number: JP-SANOFI-AVENTIS-200810968JP

PATIENT
  Age: 9 Year
  Sex: Male

DRUGS (8)
  1. ALLEGRA [Suspect]
     Dosage: DOSE UNIT: 30 MG
     Route: 048
     Dates: start: 20070129, end: 20071201
  2. KLARICID [Concomitant]
     Route: 048
     Dates: start: 20080111, end: 20080114
  3. MUCODYNE [Concomitant]
     Indication: ACUTE SINUSITIS
     Route: 048
     Dates: start: 20070219, end: 20070223
  4. MUCODYNE [Concomitant]
     Route: 048
     Dates: start: 20080111, end: 20080114
  5. KLARICID [Concomitant]
     Indication: ACUTE SINUSITIS
     Route: 048
     Dates: start: 20070219, end: 20070223
  6. DASEN [Concomitant]
     Route: 048
     Dates: start: 20080111, end: 20080114
  7. ALLEGRA [Suspect]
     Dosage: DOSE UNIT: 30 MG
     Route: 048
     Dates: start: 20080101, end: 20080301
  8. DASEN [Concomitant]
     Indication: ACUTE SINUSITIS
     Route: 048
     Dates: start: 20070219, end: 20070223

REACTIONS (1)
  - LOSS OF CONSCIOUSNESS [None]
